FAERS Safety Report 21048453 (Version 6)
Quarter: 2022Q3

REPORT INFORMATION
  Report Type: Report from Study
  Country: CA (occurrence: CA)
  Receive Date: 20220706
  Receipt Date: 20220815
  Transmission Date: 20221027
  Serious: Yes (Other)
  Sender: FDA-Public Use
  Company Number: CA-AstraZeneca-2022A219589

PATIENT
  Sex: Female

DRUGS (2)
  1. ENHERTU [Suspect]
     Active Substance: FAM-TRASTUZUMAB DERUXTECAN-NXKI
     Indication: HER2 positive breast cancer
     Dosage: 339 MG, ONCE EVERY 3 WK
     Route: 042
     Dates: start: 20220408
  2. ENHERTU [Suspect]
     Active Substance: FAM-TRASTUZUMAB DERUXTECAN-NXKI
     Dosage: 315 MG, ONCE EVERY 3 WK
     Route: 042
     Dates: start: 20220408

REACTIONS (8)
  - Toxicity to various agents [Unknown]
  - Fatigue [Unknown]
  - Constipation [Recovered/Resolved]
  - Abdominal discomfort [Unknown]
  - Hypersomnia [Unknown]
  - Malignant neoplasm progression [Unknown]
  - Loss of consciousness [Unknown]
  - Malaise [Unknown]
